FAERS Safety Report 7499272 (Version 3)
Quarter: 2015Q3

REPORT INFORMATION
  Report Type: Report from Study
  Country: US (occurrence: US)
  Receive Date: 20100723
  Receipt Date: 20150928
  Transmission Date: 20151125
  Serious: Yes (Hospitalization)
  Sender: FDA-Public Use
  Company Number: US-ROCHE-715960

PATIENT
  Age: 61 Year
  Sex: Male
  Weight: 82.1 kg

DRUGS (4)
  1. RO 5190591 (HCV PROTEASE INHIBITOR) [Suspect]
     Active Substance: DANOPREVIR
     Indication: CHRONIC HEPATITIS C
     Dosage: FOR 12 WEEKS
     Route: 048
     Dates: start: 20091028, end: 20100817
  2. PEG-INTERFERON ALFA 2A [Suspect]
     Active Substance: PEGINTERFERON ALFA-2A
     Indication: CHRONIC HEPATITIS C
     Dosage: DATE OF LAST DOSE PRIOR TO SAE:09 JULY 2010.
     Route: 058
     Dates: start: 20091028, end: 20100817
  3. RIBAVIRIN. [Suspect]
     Active Substance: RIBAVIRIN
     Indication: CHRONIC HEPATITIS C
     Dosage: DATE OF LAST DOSE PRIOR TO SAE:13 JULY 2010.TEMPORARILY INTERRUPTED.
     Route: 048
     Dates: start: 20091028, end: 20100714
  4. RIBAVIRIN. [Suspect]
     Active Substance: RIBAVIRIN
     Dosage: DRUG RESTARTED.
     Route: 048
     Dates: start: 20100714, end: 20100817

REACTIONS (1)
  - Chest pain [Recovered/Resolved]

NARRATIVE: CASE EVENT DATE: 20100713
